FAERS Safety Report 18407025 (Version 1)
Quarter: 2020Q4

REPORT INFORMATION
  Report Type: Spontaneous
  Country: CN (occurrence: CN)
  Receive Date: 20201020
  Receipt Date: 20201020
  Transmission Date: 20210114
  Serious: Yes (Hospitalization, Other)
  Sender: FDA-Public Use
  Company Number: CN-GILEAD-2020-0499963

PATIENT
  Age: 54 Year
  Sex: Male

DRUGS (3)
  1. HEPSERA [Suspect]
     Active Substance: ADEFOVIR DIPIVOXIL
     Indication: CHRONIC HEPATITIS B
     Dosage: 1 DF, QD, TABLET
     Route: 048
     Dates: start: 20100401, end: 20200429
  2. VALSARTAN. [Concomitant]
     Active Substance: VALSARTAN
     Indication: HYPERTENSION
  3. ENTECAVIR. [Concomitant]
     Active Substance: ENTECAVIR

REACTIONS (7)
  - Chronic kidney disease [Recovering/Resolving]
  - Protein urine present [Recovering/Resolving]
  - Urine output increased [Recovering/Resolving]
  - Renal failure [Recovering/Resolving]
  - Urine abnormality [Recovering/Resolving]
  - Creatinine urine increased [Recovering/Resolving]
  - Glomerular filtration rate decreased [Recovering/Resolving]

NARRATIVE: CASE EVENT DATE: 20200429
